FAERS Safety Report 7578587-X (Version None)
Quarter: 2011Q2

REPORT INFORMATION
  Report Type: 
  Country: None (occurrence: None)
  Receive Date: 20110628
  Receipt Date: 20110627
  Transmission Date: 20111010
  Serious: Yes (Death, Other)
  Sender: FDA-Public Use
  Company Number: IN-PFIZER INC-2011142995

PATIENT
  Sex: Female

DRUGS (3)
  1. SOLU-MEDROL [Suspect]
     Dosage: 250 MG, 1X/DAY
  2. LEFLUNOMIDE [Concomitant]
     Indication: RHEUMATOID ARTHRITIS
     Dosage: UNK
  3. SOLU-MEDROL [Suspect]
     Indication: RHEUMATOID ARTHRITIS
     Dosage: 80 MG, 1X/DAY (FOR 3 DAYS)
     Route: 042

REACTIONS (3)
  - SEPSIS [None]
  - DEATH [None]
  - HEPATITIS B [None]
